FAERS Safety Report 9544153 (Version 1)
Quarter: 2013Q3

REPORT INFORMATION
  Report Type: Spontaneous
  Country: FR (occurrence: FR)
  Receive Date: 20130923
  Receipt Date: 20130923
  Transmission Date: 20140515
  Serious: Yes (Hospitalization, Other)
  Sender: FDA-Public Use
  Company Number: FR-PFIZER INC-2013266174

PATIENT
  Age: 70 Year
  Sex: Male

DRUGS (8)
  1. EFFEXOR [Concomitant]
     Dosage: 37.5 MG, UNK
  2. MOPRAL [Concomitant]
     Dosage: 20 MG, UNK
  3. METFORMIN [Concomitant]
     Dosage: 850 MG, UNK
  4. DIAMICRON [Concomitant]
     Dosage: 30
  5. CADUET [Suspect]
     Dosage: 10/10 MG
     Route: 048
  6. TIAPRIDAL [Suspect]
     Dosage: UNK
     Route: 048
  7. PLAVIX [Concomitant]
     Dosage: 75 MG, UNK
  8. COTAREG [Concomitant]
     Dosage: 80/12.5 MG

REACTIONS (3)
  - Orthostatic hypotension [Recovered/Resolved]
  - Blood pressure inadequately controlled [Unknown]
  - Syncope [Unknown]
